FAERS Safety Report 5150634-4 (Version None)
Quarter: 2006Q4

REPORT INFORMATION
  Report Type: 
  Country: None (occurrence: None)
  Receive Date: 20061114
  Receipt Date: 20061103
  Transmission Date: 20070319
  Serious: Yes (Other)
  Sender: FDA-Public Use
  Company Number: CA-AVENTIS-200621491GDDC

PATIENT
  Age: 55 Year
  Sex: Male

DRUGS (5)
  1. FLAGYL [Suspect]
     Route: 042
  2. VANCOMYCIN [Concomitant]
  3. HEPARIN [Concomitant]
     Route: 058
  4. ZANTAC [Concomitant]
     Dosage: DOSE: UNK
     Route: 042
  5. SOLU-MEDROL [Concomitant]
     Route: 042

REACTIONS (1)
  - BLOOD AMYLASE INCREASED [None]
